FAERS Safety Report 6679655-7 (Version None)
Quarter: 2010Q2

REPORT INFORMATION
  Report Type: 
  Country: None (occurrence: None)
  Receive Date: 20100413
  Receipt Date: 20100406
  Transmission Date: 20101027
  Serious: Yes (Other)
  Sender: FDA-Public Use
  Company Number: B0577493A

PATIENT
  Sex: Female
  Weight: 27 kg

DRUGS (5)
  1. RELENZA [Suspect]
     Indication: INFLUENZA
     Dosage: 20MG PER DAY
     Route: 055
     Dates: start: 20090525, end: 20090526
  2. KLARICID [Concomitant]
     Indication: BRONCHITIS
     Dosage: 150MG TWICE PER DAY
     Route: 048
     Dates: start: 20090525, end: 20090529
  3. MUCODYNE [Concomitant]
     Indication: BRONCHITIS
     Dosage: 250MG TWICE PER DAY
     Route: 048
     Dates: start: 20090525, end: 20090529
  4. ASVERIN [Concomitant]
     Indication: BRONCHITIS
     Dosage: 10MG TWICE PER DAY
     Route: 048
     Dates: start: 20090525, end: 20090529
  5. CALONAL [Concomitant]
     Indication: INFLUENZA
     Dosage: 200MG PER DAY
     Route: 048
     Dates: start: 20090525, end: 20090525

REACTIONS (7)
  - ABNORMAL BEHAVIOUR [None]
  - ASTHENIA [None]
  - FATIGUE [None]
  - FLAT AFFECT [None]
  - HALLUCINATION [None]
  - SPEECH DISORDER [None]
  - VISION BLURRED [None]
